FAERS Safety Report 21881427 (Version 3)
Quarter: 2023Q1

REPORT INFORMATION
  Report Type: Spontaneous
  Country: US (occurrence: US)
  Receive Date: 20230119
  Receipt Date: 20230129
  Transmission Date: 20230418
  Serious: No
  Sender: FDA-Public Use
  Company Number: US-AMGEN-USASP2023008976

PATIENT
  Sex: Female

DRUGS (3)
  1. AIMOVIG [Suspect]
     Active Substance: ERENUMAB-AOOE
     Indication: Migraine
     Dosage: 140 MILLIGRAM, QMO
     Route: 065
     Dates: start: 2022
  2. TOPIRAMATE [Concomitant]
     Active Substance: TOPIRAMATE
     Indication: Migraine
     Dosage: UNK
     Route: 065
  3. NURTEC ODT [Concomitant]
     Active Substance: RIMEGEPANT SULFATE
     Indication: Migraine
     Dosage: UNK

REACTIONS (7)
  - Device difficult to use [Unknown]
  - Wrong technique in product usage process [Unknown]
  - Accidental exposure to product [Unknown]
  - Platelet count decreased [Unknown]
  - White blood cell count increased [Unknown]
  - Product communication issue [Unknown]
  - Therapeutic product effect incomplete [Unknown]

NARRATIVE: CASE EVENT DATE: 20220101
